FAERS Safety Report 7239157-6 (Version None)
Quarter: 2011Q1

REPORT INFORMATION
  Report Type: 
  Country: None (occurrence: None)
  Receive Date: 20110121
  Receipt Date: 20110110
  Transmission Date: 20110831
  Serious: Yes (Death, Life-Threatening, Hospitalization, Other)
  Sender: FDA-Public Use
  Company Number: US-GENZYME-CLOF-1001366

PATIENT
  Sex: Female
  Weight: 89.2 kg

DRUGS (13)
  1. CLOLAR [Suspect]
     Indication: ACUTE MYELOID LEUKAEMIA
     Dosage: 40 MG/M2, QDX5
     Route: 042
     Dates: start: 20101120, end: 20101124
  2. FILGRASTIM [Concomitant]
     Indication: PRODUCT USED FOR UNKNOWN INDICATION
     Dosage: 375 MCG, UNK
     Route: 065
     Dates: start: 20101128
  3. REGLAN [Concomitant]
     Indication: PRODUCT USED FOR UNKNOWN INDICATION
     Dosage: 10 MG, QID
     Route: 042
     Dates: start: 20101201
  4. ETOPOSIDE [Suspect]
     Indication: ACUTE MYELOID LEUKAEMIA
     Dosage: UNK
     Route: 065
  5. LEVAQUIN [Concomitant]
     Indication: PRODUCT USED FOR UNKNOWN INDICATION
     Dosage: 750 MG, QD
     Route: 042
     Dates: start: 20101206
  6. CEFEPIME [Concomitant]
     Indication: PRODUCT USED FOR UNKNOWN INDICATION
     Dosage: 2 G, TID
     Route: 042
     Dates: start: 20101208
  7. NEXIUM [Concomitant]
     Indication: PRODUCT USED FOR UNKNOWN INDICATION
     Dosage: 40 MG, BID
     Route: 065
     Dates: start: 20101118
  8. CARAFATE [Concomitant]
     Indication: PRODUCT USED FOR UNKNOWN INDICATION
     Dosage: 1 TAB, QID
     Route: 065
     Dates: start: 20101201
  9. ZOFRAN [Concomitant]
     Indication: PRODUCT USED FOR UNKNOWN INDICATION
     Dosage: 8 MG, QID
     Route: 042
     Dates: start: 20101121
  10. ZOLOFT [Concomitant]
     Indication: PRODUCT USED FOR UNKNOWN INDICATION
     Dosage: 100 MG, QD
     Route: 048
     Dates: start: 20101118
  11. FLAGYL [Concomitant]
     Indication: PRODUCT USED FOR UNKNOWN INDICATION
     Dosage: 500 MG, TID
     Route: 042
     Dates: start: 20101203
  12. ACYCLOVIR [Concomitant]
     Indication: PRODUCT USED FOR UNKNOWN INDICATION
     Dosage: 400 MG, TID
     Route: 042
     Dates: start: 20101203
  13. CYCLOPHOSPHAMIDE [Suspect]
     Indication: ACUTE MYELOID LEUKAEMIA
     Dosage: UNK
     Route: 065

REACTIONS (11)
  - MULTI-ORGAN FAILURE [None]
  - ARRHYTHMIA [None]
  - ACUTE RESPIRATORY DISTRESS SYNDROME [None]
  - FUNGAL INFECTION [None]
  - MUSCULAR WEAKNESS [None]
  - LEFT VENTRICULAR DYSFUNCTION [None]
  - BONE MARROW FAILURE [None]
  - RENAL FAILURE [None]
  - HYPOTENSION [None]
  - RESPIRATORY FAILURE [None]
  - FEBRILE NEUTROPENIA [None]
